FAERS Safety Report 11887979 (Version 3)
Quarter: 2017Q1

REPORT INFORMATION
  Report Type: Spontaneous
  Country: GB (occurrence: GB)
  Receive Date: 20160105
  Receipt Date: 20170106
  Transmission Date: 20170428
  Serious: Yes (Hospitalization, Other)
  Sender: FDA-Public Use
  Company Number: GB-009507513-1601GBR000052

PATIENT
  Sex: Female

DRUGS (2)
  1. ERTAPENEM SODIUM [Suspect]
     Active Substance: ERTAPENEM SODIUM
     Dosage: 1 G, UNK
     Route: 042
     Dates: end: 201512
  2. TEICOPLANIN [Suspect]
     Active Substance: TEICOPLANIN
     Dosage: 200 MG, FORMULATION:UNKNOWN
     Route: 042
     Dates: end: 201512

REACTIONS (8)
  - Hospitalisation [Unknown]
  - Abdominal distension [Unknown]
  - Muscular weakness [Unknown]
  - Fatigue [Unknown]
  - Decubitus ulcer [Unknown]
  - Abdominal pain [Recovering/Resolving]
  - Abdominal cavity drainage [Unknown]
  - Nausea [Unknown]

NARRATIVE: CASE EVENT DATE: 20151222
